FAERS Safety Report 19130868 (Version 1)
Quarter: 2021Q2

REPORT INFORMATION
  Report Type: Report from Study
  Country: CA (occurrence: CA)
  Receive Date: 20210413
  Receipt Date: 20210413
  Transmission Date: 20210717
  Serious: Yes (Other)
  Sender: FDA-Public Use
  Company Number: CA-BAUSCH-BL-2021-012124

PATIENT
  Age: 64 Year
  Sex: Female

DRUGS (5)
  1. BUDESONIDE/FORMOTEROL FUMARATE [Suspect]
     Active Substance: BUDESONIDE\FORMOTEROL FUMARATE
     Indication: ASTHMA
  2. PREDNISONE. [Suspect]
     Active Substance: PREDNISONE
     Indication: ASTHMA
     Dosage: NOT SPECIFIED
     Route: 065
  3. CALCIUM [Concomitant]
     Active Substance: CALCIUM
     Indication: PRODUCT USED FOR UNKNOWN INDICATION
     Dosage: NOT SPECIFIED
     Route: 065
  4. SALBUTAMOL SULFATE [Suspect]
     Active Substance: ALBUTEROL SULFATE
     Indication: ASTHMA
     Route: 065
  5. ERGOCALCIFEROL. [Concomitant]
     Active Substance: ERGOCALCIFEROL
     Indication: PRODUCT USED FOR UNKNOWN INDICATION
     Route: 065

REACTIONS (22)
  - Bronchial wall thickening [Unknown]
  - Therapeutic product effect incomplete [Unknown]
  - Asthenia [Unknown]
  - Asthma [Unknown]
  - Colitis [Unknown]
  - Diverticulitis [Unknown]
  - Renal neoplasm [Unknown]
  - Headache [Unknown]
  - Eosinophilia [Unknown]
  - Rectal haemorrhage [Unknown]
  - Renal cell carcinoma [Unknown]
  - Wheezing [Unknown]
  - Lung hyperinflation [Unknown]
  - Rhonchi [Unknown]
  - Sepsis [Unknown]
  - Abdominal pain [Unknown]
  - Pneumonia [Unknown]
  - Obstructive airways disorder [Unknown]
  - Nausea [Unknown]
  - Colitis ulcerative [Unknown]
  - Soft tissue disorder [Unknown]
  - Weight decreased [Unknown]
